FAERS Safety Report 14257365 (Version 2)
Quarter: 2017Q4

REPORT INFORMATION
  Report Type: Spontaneous
  Country: US (occurrence: US)
  Receive Date: 20171207
  Receipt Date: 20171223
  Transmission Date: 20180321
  Serious: No
  Sender: FDA-Public Use
  Company Number: US-009507513-1711USA012957

PATIENT
  Sex: Female
  Weight: 88.89 kg

DRUGS (1)
  1. NEXPLANON [Suspect]
     Active Substance: ETONOGESTREL
     Indication: CONTRACEPTION
     Dosage: A NEXPLANON UNIT, UNK, LEFT ARM
     Route: 059
     Dates: start: 20161018, end: 20171206

REACTIONS (2)
  - Implant site pain [Not Recovered/Not Resolved]
  - Device kink [Recovered/Resolved]
